FAERS Safety Report 12992950 (Version 2)
Quarter: 2017Q4

REPORT INFORMATION
  Report Type: Spontaneous
  Country: US (occurrence: US)
  Receive Date: 20161202
  Receipt Date: 20171229
  Transmission Date: 20180320
  Serious: Yes (Hospitalization, Other)
  Sender: FDA-Public Use
  Company Number: US-ACCORD-046106

PATIENT
  Age: 68 Year
  Sex: Female

DRUGS (1)
  1. LISINOPRIL. [Suspect]
     Active Substance: LISINOPRIL
     Indication: HYPERTENSION

REACTIONS (4)
  - Hypotension [Recovered/Resolved]
  - Angioedema [Recovered/Resolved]
  - Acute kidney injury [Recovered/Resolved]
  - Metabolic acidosis [Recovered/Resolved]
